FAERS Safety Report 12805991 (Version 6)
Quarter: 2020Q2

REPORT INFORMATION
  Report Type: Spontaneous
  Country: US (occurrence: US)
  Receive Date: 20161004
  Receipt Date: 20200414
  Transmission Date: 20200713
  Serious: Yes (Hospitalization, Other)
  Sender: FDA-Public Use
  Company Number: US-PFIZER INC-2016460754

PATIENT
  Age: 73 Year
  Sex: Female

DRUGS (13)
  1. FOLIC ACID. [Concomitant]
     Active Substance: FOLIC ACID
     Dosage: 800 MG, DAILY
  2. HYDROXYCHLOROQUINE [Concomitant]
     Active Substance: HYDROXYCHLOROQUINE
     Dosage: 200 MG, 1X/DAY, (DAILY)
  3. SYNTHROID [Concomitant]
     Active Substance: LEVOTHYROXINE SODIUM
     Dosage: 75 MG, 1X/DAY, (DAILY)
  4. MULTIVITAMINS [Concomitant]
     Active Substance: VITAMINS
     Dosage: UNK
  5. PRAVASTATIN. [Concomitant]
     Active Substance: PRAVASTATIN
     Dosage: 40 MG, 1X/DAY, (DAILY)
  6. SULFAZINE [Concomitant]
     Active Substance: SULFASALAZINE
     Dosage: 500 MG, 2X/DAY, (DAILY)
  7. METOPROLOL. [Concomitant]
     Active Substance: METOPROLOL
     Dosage: 50 MG, 2X/DAY, (DAILY)
  8. PREDNISONE. [Concomitant]
     Active Substance: PREDNISONE
     Dosage: 40 MG, 1X/DAY, (DAILY)
  9. XELJANZ [Suspect]
     Active Substance: TOFACITINIB CITRATE
     Indication: RHEUMATOID ARTHRITIS
     Dosage: 5 MG, 2X/DAY
     Route: 048
     Dates: start: 201610
  10. CITALOPRAM [Concomitant]
     Active Substance: CITALOPRAM HYDROBROMIDE
     Dosage: 40 MG, 1X/DAY, (DAILY)
  11. ASPIRIN. [Concomitant]
     Active Substance: ASPIRIN
     Dosage: 81 MG, DAILY
  12. METHOTREXATE. [Concomitant]
     Active Substance: METHOTREXATE
     Dosage: UNK, WEEKLY (7 TAB 2.5)
  13. OMEPRAZOLE. [Concomitant]
     Active Substance: OMEPRAZOLE
     Dosage: UNK UNK, DAILY

REACTIONS (3)
  - Urinary tract infection [Recovered/Resolved]
  - Malaise [Unknown]
  - Sinusitis [Not Recovered/Not Resolved]

NARRATIVE: CASE EVENT DATE: 201612
